FAERS Safety Report 5505162-0 (Version None)
Quarter: 2007Q4

REPORT INFORMATION
  Report Type: 
  Country: None (occurrence: None)
  Receive Date: 20071102
  Receipt Date: 20071029
  Transmission Date: 20080405
  Serious: Yes (Other)
  Sender: FDA-Public Use
  Company Number: AU-ASTRAZENECA-2007AP05925

PATIENT
  Sex: Female

DRUGS (2)
  1. SEROQUEL [Suspect]
     Dosage: 25-50 MG
     Route: 048
  2. FLUVOXAMINE MALEATE [Concomitant]
     Route: 048

REACTIONS (1)
  - OCULOGYRIC CRISIS [None]
